FAERS Safety Report 7203619-8 (Version None)
Quarter: 2010Q4

REPORT INFORMATION
  Report Type: 
  Country: None (occurrence: None)
  Receive Date: 20101230
  Receipt Date: 20101223
  Transmission Date: 20110411
  Serious: Yes (Other)
  Sender: FDA-Public Use
  Company Number: DE-PFIZER INC-2010159955

PATIENT
  Age: 66 Year
  Sex: Male
  Weight: 100 kg

DRUGS (1)
  1. XALATAN [Suspect]
     Indication: OPEN ANGLE GLAUCOMA
     Dosage: 1X/DAY IN THE EVENING
     Route: 047
     Dates: start: 19980101, end: 20100101

REACTIONS (6)
  - DYSGEUSIA [None]
  - DYSPHONIA [None]
  - EYE IRRITATION [None]
  - LARYNGEAL OEDEMA [None]
  - VOCAL CORD DISORDER [None]
  - VOCAL CORD INFLAMMATION [None]
